FAERS Safety Report 10368684 (Version 4)
Quarter: 2015Q1

REPORT INFORMATION
  Report Type: Spontaneous
  Country: JP (occurrence: JP)
  Receive Date: 20140807
  Receipt Date: 20150203
  Transmission Date: 20150720
  Serious: Yes (Hospitalization, Other)
  Sender: FDA-Public Use
  Company Number: JP-ACTELION-A-CH2014-103155

PATIENT
  Age: 35 Year
  Sex: Male
  Weight: 47.2 kg

DRUGS (14)
  1. SILDENAFIL CITRATE. [Concomitant]
     Active Substance: SILDENAFIL CITRATE
  2. VELETRI [Suspect]
     Active Substance: EPOPROSTENOL
     Indication: PULMONARY ARTERIAL HYPERTENSION
     Dosage: 97 NG/KG, PER MIN
     Route: 042
     Dates: start: 20140410
  3. VELETRI [Suspect]
     Active Substance: EPOPROSTENOL
     Dosage: 86 NG/KG, PER MIN
     Route: 042
     Dates: start: 20130926, end: 20140409
  4. SPIRONOLACTONE. [Concomitant]
     Active Substance: SPIRONOLACTONE
  5. ASPIRIN. [Concomitant]
     Active Substance: ASPIRIN
  6. FERROUS SODIUM CITRATE [Concomitant]
  7. FUROSEMIDE. [Concomitant]
     Active Substance: FUROSEMIDE
  8. AMBRISENTAN [Concomitant]
     Active Substance: AMBRISENTAN
  9. ESOMEPRAZOLE MAGNESIUM. [Concomitant]
     Active Substance: ESOMEPRAZOLE MAGNESIUM
  10. OXYGEN. [Concomitant]
     Active Substance: OXYGEN
  11. BISOPROLOL FUMARATE. [Concomitant]
     Active Substance: BISOPROLOL FUMARATE
  12. ALLOPURINOL. [Concomitant]
     Active Substance: ALLOPURINOL
  13. POTASSIUM CHLORIDE. [Concomitant]
     Active Substance: POTASSIUM CHLORIDE
  14. AMBROXOL HYDROCHLORIDE [Concomitant]
     Active Substance: AMBROXOL HYDROCHLORIDE

REACTIONS (6)
  - Device occlusion [Recovered/Resolved]
  - Catheter placement [Recovered/Resolved]
  - Catheter removal [Recovered/Resolved]
  - Incorrect dose administered by device [Recovered/Resolved]
  - Oxygen saturation decreased [Recovered/Resolved]
  - Pallor [Recovered/Resolved]

NARRATIVE: CASE EVENT DATE: 20140729
